FAERS Safety Report 4808370-7 (Version None)
Quarter: 2005Q4

REPORT INFORMATION
  Report Type: 
  Country: None (occurrence: None)
  Receive Date: 20051020
  Receipt Date: 20051020
  Transmission Date: 20060501
  Serious: Yes (Hospitalization)
  Sender: FDA-Public Use
  Company Number: None

PATIENT
  Age: 84 Year

DRUGS (12)
  1. HEPARIN [Suspect]
     Indication: ATRIAL FIBRILLATION
     Dosage: IV DRIP
  2. ASPIRIN [Suspect]
     Indication: CORONARY ARTERY DISEASE
     Dosage: 81MG QD  CHRONIC
  3. ALBUTEROL [Concomitant]
  4. LASIX [Concomitant]
  5. GATIFLOXACIN [Concomitant]
  6. AMIODARONE HCL [Concomitant]
  7. HYDRALAZINE [Concomitant]
  8. ATROVENT [Concomitant]
  9. DILTIAZEM [Concomitant]
  10. POTASSIUM CHLORIDE [Concomitant]
  11. TERAZOSIN HCL [Concomitant]
  12. DIGOXIN [Concomitant]

REACTIONS (1)
  - GASTROINTESTINAL HAEMORRHAGE [None]
